FAERS Safety Report 12224513 (Version 2)
Quarter: 2016Q2

REPORT INFORMATION
  Report Type: Spontaneous
  Country: PE (occurrence: PE)
  Receive Date: 20160331
  Receipt Date: 20160406
  Transmission Date: 20160815
  Serious: Yes (Other)
  Sender: FDA-Public Use
  Company Number: PE-PFIZER INC-2016168641

PATIENT
  Age: 77 Year
  Sex: Male

DRUGS (2)
  1. VITAMINS /00067501/ [Concomitant]
     Active Substance: VITAMINS
     Indication: EYE DISORDER
     Dosage: UNK
     Route: 048
  2. XALATAN [Suspect]
     Active Substance: LATANOPROST
     Indication: GLAUCOMA
     Dosage: 2 GTT, 1X/DAY EACH EYE
     Route: 047

REACTIONS (2)
  - Visual acuity reduced [Not Recovered/Not Resolved]
  - Abasia [Not Recovered/Not Resolved]
